FAERS Safety Report 4393254-1 (Version None)
Quarter: 2004Q3

REPORT INFORMATION
  Report Type: 
  Country: None (occurrence: None)
  Receive Date: 20040702
  Receipt Date: 20040622
  Transmission Date: 20050211
  Serious: Yes (Death)
  Sender: FDA-Public Use
  Company Number: GB-JNJFOC-20040605445

PATIENT
  Age: 65 Year
  Sex: Female

DRUGS (5)
  1. REMICADE [Suspect]
     Indication: RHEUMATOID ARTHRITIS
     Dosage: 200 MG INTRAVENOUS
     Route: 042
     Dates: start: 20021111, end: 20040123
  2. BENORAL (BENORILATE) [Concomitant]
  3. CALCHICHEW (CALCIUM CARBONATE) [Concomitant]
  4. PREDNISOLONE [Concomitant]
  5. METHOTREXATE [Concomitant]

REACTIONS (1)
  - PULMONARY FIBROSIS [None]
